FAERS Safety Report 5628262-3 (Version None)
Quarter: 2008Q1

REPORT INFORMATION
  Report Type: 
  Country: None (occurrence: None)
  Receive Date: 20080215
  Receipt Date: 20080205
  Transmission Date: 20080703
  Serious: Yes (Death)
  Sender: FDA-Public Use
  Company Number: AT-SANOFI-SYNTHELABO-A01200801287

PATIENT
  Age: 195 Month
  Sex: Male

DRUGS (3)
  1. TRESLEEN [Concomitant]
     Dosage: 100 MG
     Route: 048
     Dates: start: 20071001
  2. ZYPREXA [Concomitant]
     Indication: STRESS
     Dosage: 10 MG
     Route: 048
     Dates: start: 20071001
  3. IVADAL [Suspect]
     Indication: INITIAL INSOMNIA
     Route: 048
     Dates: start: 20080124

REACTIONS (1)
  - DEATH [None]
